FAERS Safety Report 5720430-5 (Version None)
Quarter: 2008Q2

REPORT INFORMATION
  Report Type: 
  Country: None (occurrence: None)
  Receive Date: 20080428
  Receipt Date: 20080416
  Transmission Date: 20081010
  Serious: Yes (Other)
  Sender: FDA-Public Use
  Company Number: JP-PFIZER INC-2008034226

PATIENT

DRUGS (2)
  1. ZYVOX [Suspect]
     Indication: PNEUMONIA
     Dosage: DAILY DOSE:600MG
     Route: 042
  2. OTHER BETA-LACTAM ANTIBACTERIALS [Concomitant]

REACTIONS (1)
  - HYPONATRAEMIA [None]
